FAERS Safety Report 10100732 (Version 5)
Quarter: 2016Q4

REPORT INFORMATION
  Report Type: Report from Study
  Country: JP (occurrence: JP)
  Receive Date: 20140423
  Receipt Date: 20161222
  Transmission Date: 20170206
  Serious: Yes (Death, Hospitalization, Other)
  Sender: FDA-Public Use
  Company Number: PHHY2014JP049501

PATIENT
  Age: 3 Year
  Sex: Male

DRUGS (9)
  1. MYCOPHENOLATE MOFETIL. [Concomitant]
     Active Substance: MYCOPHENOLATE MOFETIL
     Indication: PRODUCT USED FOR UNKNOWN INDICATION
     Dosage: 250 MG, UNK
     Route: 048
     Dates: start: 20120804
  2. PROGRAF [Suspect]
     Active Substance: TACROLIMUS\TACROLIMUS ANHYDROUS
     Dosage: 1.5 MG, QD
     Route: 048
     Dates: start: 20120113
  3. CERTICAN [Suspect]
     Active Substance: EVEROLIMUS
     Indication: HEART TRANSPLANT
     Dosage: 0.5 MG, QD
     Route: 048
     Dates: start: 20111227, end: 20120819
  4. NEORAL [Concomitant]
     Active Substance: CYCLOSPORINE
     Indication: PROPHYLAXIS AGAINST TRANSPLANT REJECTION
     Dosage: UNK
     Route: 048
  5. PROGRAF [Suspect]
     Active Substance: TACROLIMUS\TACROLIMUS ANHYDROUS
     Dosage: 1.2 MG, QD
     Route: 048
     Dates: start: 20111229
  6. MYCOPHENOLATE MOFETIL. [Concomitant]
     Active Substance: MYCOPHENOLATE MOFETIL
     Dosage: 125 MG, UNK
     Route: 048
     Dates: start: 20120816, end: 20120819
  7. URALYT [Concomitant]
     Active Substance: POTASSIUM CITRATE\TRISODIUM CITRATE DIHYDRATE
     Indication: PRODUCT USED FOR UNKNOWN INDICATION
     Dosage: 2 DF, UNK
     Route: 048
     Dates: start: 20120112
  8. PROGRAF [Suspect]
     Active Substance: TACROLIMUS\TACROLIMUS ANHYDROUS
     Indication: HEART TRANSPLANT
     Dosage: 1.2 MG, QD
     Route: 048
     Dates: start: 20111222
  9. PROGRAF [Suspect]
     Active Substance: TACROLIMUS\TACROLIMUS ANHYDROUS
     Dosage: 1.8 MG, QD
     Route: 048
     Dates: start: 20120116, end: 20120802

REACTIONS (17)
  - Post transplant lymphoproliferative disorder [Fatal]
  - Gastrointestinal perforation [Unknown]
  - Monocyte count decreased [Unknown]
  - Pyrexia [Fatal]
  - Cytokine storm [Fatal]
  - Blood lactate dehydrogenase increased [Unknown]
  - Eosinophil count decreased [Unknown]
  - Lymphocyte count decreased [Unknown]
  - Pancytopenia [Fatal]
  - Infection [Fatal]
  - Blood pressure decreased [Unknown]
  - Histiocytosis haematophagic [Fatal]
  - Epstein-Barr virus infection [Fatal]
  - Blood glucose increased [Unknown]
  - Basophil count decreased [Unknown]
  - Haematocrit decreased [Unknown]
  - Cardiac failure [Recovering/Resolving]

NARRATIVE: CASE EVENT DATE: 20120111
